FAERS Safety Report 13504730 (Version 1)
Quarter: 2017Q2

REPORT INFORMATION
  Report Type: Spontaneous
  Country: US (occurrence: US)
  Receive Date: 20170502
  Receipt Date: 20170502
  Transmission Date: 20170830
  Serious: No
  Sender: FDA-Public Use
  Company Number: US-IMPAX LABORATORIES, INC-2017-IPXL-00205

PATIENT
  Age: 63 Year
  Sex: Male
  Weight: 73 kg

DRUGS (10)
  1. RYTARY [Suspect]
     Active Substance: CARBIDOPA\LEVODOPA
     Indication: PARKINSON^S DISEASE
     Dosage: 61.25/245MG, 3 DF, 3 /DAY
     Route: 048
     Dates: start: 20160505
  2. CARBIDOPA-LEVODOPA ER [Suspect]
     Active Substance: CARBIDOPA\LEVODOPA
     Indication: PARKINSON^S DISEASE
     Dosage: UNK
     Route: 065
  3. RYTARY [Suspect]
     Active Substance: CARBIDOPA\LEVODOPA
     Dosage: 61.25/245 MG, 3 CAPSULE 4TIMES DAILY
     Route: 048
  4. STOOL SOFTENER (DOCUSATE) [Concomitant]
     Active Substance: DOCUSATE
     Indication: CONSTIPATION
     Dosage: UNK
     Route: 065
  5. CLONAZEPAM. [Concomitant]
     Active Substance: CLONAZEPAM
     Indication: ANXIETY
     Dosage: 2 MG, UNK
     Route: 065
  6. MIRTAZAPINE. [Concomitant]
     Active Substance: MIRTAZAPINE
     Indication: STRESS
     Dosage: 60 UNK, UNK
     Route: 065
  7. MIRTAZAPINE. [Concomitant]
     Active Substance: MIRTAZAPINE
     Indication: DEPRESSION
  8. MIRTAZAPINE. [Concomitant]
     Active Substance: MIRTAZAPINE
     Indication: ANXIETY
     Dosage: 30 MG, AT NIGHT
     Route: 065
  9. PROBIOTICS NOS [Concomitant]
     Active Substance: PROBIOTICS NOS
     Indication: CONSTIPATION
     Dosage: UNK
     Route: 065
  10. RYTARY [Suspect]
     Active Substance: CARBIDOPA\LEVODOPA
     Dosage: 61.25/245MG THREE CAPSULES, EVERY 4 HOURS
     Route: 048

REACTIONS (31)
  - Oral pain [Unknown]
  - Vasodilatation [Not Recovered/Not Resolved]
  - Fall [Unknown]
  - Erythema [Unknown]
  - Dyskinesia [Unknown]
  - Drug effect delayed [Not Recovered/Not Resolved]
  - Morbid thoughts [Unknown]
  - Rash [Unknown]
  - Pain in extremity [Not Recovered/Not Resolved]
  - Muscle tightness [Not Recovered/Not Resolved]
  - Intentional overdose [Unknown]
  - Blood pressure decreased [Not Recovered/Not Resolved]
  - Malaise [Not Recovered/Not Resolved]
  - Arthralgia [Not Recovered/Not Resolved]
  - Tremor [Not Recovered/Not Resolved]
  - Constipation [Not Recovered/Not Resolved]
  - Hypokinesia [Unknown]
  - Anxiety [Unknown]
  - Prescribed overdose [Unknown]
  - Musculoskeletal stiffness [Recovered/Resolved with Sequelae]
  - Pruritus [Unknown]
  - Speech disorder [Unknown]
  - Gait disturbance [Unknown]
  - Treatment noncompliance [Unknown]
  - Drug effect incomplete [Unknown]
  - Weight decreased [Not Recovered/Not Resolved]
  - Euphoric mood [Unknown]
  - Skin wrinkling [Unknown]
  - Muscle twitching [Unknown]
  - Dystonia [Unknown]
  - Dysphonia [Unknown]

NARRATIVE: CASE EVENT DATE: 201610
